FAERS Safety Report 8802763 (Version 1)
Quarter: 2012Q4

REPORT INFORMATION
  Report Type: 
  Country: FR (occurrence: FR)
  Receive Date: 20120921
  Receipt Date: 20120921
  Transmission Date: 20130627
  Serious: Yes (Hospitalization)
  Sender: FDA-Public Use
  Company Number: FR-009507513-1209FRA008315

PATIENT
  Age: 54 Year
  Sex: Female

DRUGS (8)
  1. COSOPT [Suspect]
     Dosage: UNK
     Dates: start: 201202
  2. ALPHAGAN [Suspect]
     Dosage: UNK
     Dates: start: 201112
  3. LUMIGAN [Suspect]
     Dosage: UNK
     Dates: start: 201112
  4. EPITOMAX [Concomitant]
  5. TELFAST [Concomitant]
  6. CYANOCOBALAMIN [Concomitant]
  7. LEVOTHYROX [Concomitant]
  8. LANZOR [Concomitant]

REACTIONS (7)
  - Palpitations [Not Recovered/Not Resolved]
  - Vertigo [Not Recovered/Not Resolved]
  - Fatigue [Not Recovered/Not Resolved]
  - Memory impairment [Not Recovered/Not Resolved]
  - Fall [Recovered/Resolved]
  - Lower limb fracture [Not Recovered/Not Resolved]
  - Alopecia [Not Recovered/Not Resolved]
